FAERS Safety Report 5460148-X (Version None)
Quarter: 2007Q3

REPORT INFORMATION
  Report Type: 
  Country: None (occurrence: None)
  Receive Date: 20070919
  Receipt Date: 20070517
  Transmission Date: 20080115
  Serious: Yes (Death, Hospitalization)
  Sender: FDA-Public Use
  Company Number: US-ASTRAZENECA-2007UW12253

PATIENT
  Age: 56 Year
  Sex: Male

DRUGS (1)
  1. SEROQUEL [Suspect]
     Indication: PSYCHOTIC DISORDER
     Dosage: UNKNOWN AMOUNT TO BE TAKEN EVERY 6 HOURS AS NEEDED
     Route: 048

REACTIONS (2)
  - ACCIDENTAL OVERDOSE [None]
  - AGITATION [None]
